FAERS Safety Report 16873707 (Version 1)
Quarter: 2019Q4

REPORT INFORMATION
  Report Type: Spontaneous
  Country: IE (occurrence: IE)
  Receive Date: 20191001
  Receipt Date: 20191001
  Transmission Date: 20200122
  Serious: Yes (Life-Threatening, Hospitalization, Other)
  Sender: FDA-Public Use
  Company Number: IE-COLLEGIUM PHARMACEUTICAL, INC.-IE-2019COL001153

PATIENT
  Sex: Male

DRUGS (2)
  1. NALTREXONE [Suspect]
     Active Substance: NALTREXONE
     Indication: PRODUCT USED FOR UNKNOWN INDICATION
     Dosage: UNK
  2. TAPENTADOL [Suspect]
     Active Substance: TAPENTADOL
     Indication: FIBROMYALGIA
     Dosage: UNK
     Route: 048
     Dates: start: 2016

REACTIONS (5)
  - Swollen tongue [Unknown]
  - Eye swelling [Unknown]
  - Adverse event [Unknown]
  - Dyspnoea [Unknown]
  - Drug interaction [Unknown]
